FAERS Safety Report 9188878 (Version 2)
Quarter: 2014Q1

REPORT INFORMATION
  Report Type: Spontaneous
  Country: GB (occurrence: GB)
  Receive Date: 20130326
  Receipt Date: 20140120
  Transmission Date: 20141002
  Serious: Yes (Other)
  Sender: FDA-Public Use
  Company Number: GB-ROCHE-1205055

PATIENT
  Age: 63 Year
  Sex: Male
  Weight: 103 kg

DRUGS (6)
  1. RIBAVIRIN [Suspect]
     Indication: HEPATITIS C
     Route: 048
     Dates: start: 20121107
  2. RIBAVIRIN [Suspect]
     Dosage: DIVIDED: 400/200
     Route: 048
     Dates: start: 2012
  3. RIBAVIRIN [Suspect]
     Route: 048
     Dates: start: 20130225
  4. TELAPREVIR [Suspect]
     Indication: HEPATITIS C
     Route: 048
     Dates: start: 20121107, end: 20130129
  5. LISINOPRIL [Concomitant]
     Indication: HYPERTENSION
     Route: 065
  6. PEGINTERFERON ALFA-2B [Concomitant]
     Indication: HEPATITIS C
     Route: 058
     Dates: start: 20121107

REACTIONS (2)
  - Anaemia [Recovered/Resolved]
  - Blood creatinine increased [Recovering/Resolving]
